FAERS Safety Report 8359127-4 (Version None)
Quarter: 2012Q2

REPORT INFORMATION
  Report Type: 
  Country: None (occurrence: None)
  Receive Date: 20120511
  Receipt Date: 20120427
  Transmission Date: 20120825
  Serious: Yes (Hospitalization)
  Sender: FDA-Public Use
  Company Number: 2010SP027602

PATIENT
  Age: 59 Year
  Sex: Female
  Weight: 48 kg

DRUGS (5)
  1. RIBAVIRIN [Suspect]
     Indication: HEPATITIS C
  2. INDAPAMIDE [Concomitant]
  3. VASTAREL [Concomitant]
  4. PLAVIX [Concomitant]
  5. PEGINTERFERON ALFA-2B [Suspect]
     Indication: HEPATITIS C
     Dosage: 25 MCG, QW, SC
     Route: 058
     Dates: start: 20081229

REACTIONS (1)
  - OSTEOARTHRITIS [None]
